FAERS Safety Report 6436025-4 (Version None)
Quarter: 2009Q4

REPORT INFORMATION
  Report Type: 
  Country: None (occurrence: None)
  Receive Date: 20091110
  Receipt Date: 20091110
  Transmission Date: 20100525
  Serious: Yes (Death)
  Sender: FDA-Public Use
  Company Number: None

PATIENT
  Age: 43 Year
  Sex: Male
  Weight: 74.8435 kg

DRUGS (1)
  1. SOLU-MEDROL [Suspect]
     Indication: ARTHROPOD STING
     Dosage: 125MG ONCE IV
     Route: 042
     Dates: start: 20090629, end: 20090629

REACTIONS (3)
  - CARDIAC ARREST [None]
  - FEELING ABNORMAL [None]
  - PALPITATIONS [None]
